FAERS Safety Report 7331512-9 (Version None)
Quarter: 2011Q1

REPORT INFORMATION
  Report Type: 
  Country: None (occurrence: None)
  Receive Date: 20110228
  Receipt Date: 20110228
  Transmission Date: 20110831
  Serious: Yes (Other)
  Sender: FDA-Public Use
  Company Number: None

PATIENT
  Age: 41 Year
  Sex: Female
  Weight: 61.2356 kg

DRUGS (2)
  1. CYMBALTA [Suspect]
     Indication: FIBROMYALGIA
     Dosage: 30 MG 1 TIME/DAY PO
     Route: 048
  2. CYMBALTA [Suspect]
     Indication: OSTEOCHONDROSIS
     Dosage: 60 MG 1 TIME/ DAY PO
     Route: 048

REACTIONS (3)
  - MUSCULOSKELETAL DISORDER [None]
  - JOINT SWELLING [None]
  - ARTHRALGIA [None]
